FAERS Safety Report 10222802 (Version 4)
Quarter: 2014Q4

REPORT INFORMATION
  Report Type: Report from Study
  Country: DE (occurrence: DE)
  Receive Date: 20140606
  Receipt Date: 20141106
  Transmission Date: 20150528
  Serious: Yes (Hospitalization)
  Sender: FDA-Public Use
  Company Number: DE-ONYX-2014-0670

PATIENT
  Age: 70 Year
  Sex: Male

DRUGS (25)
  1. CARFILZOMIB [Suspect]
     Active Substance: CARFILZOMIB
     Route: 042
     Dates: start: 20140109, end: 20140117
  2. DEXAMETHASONE. [Suspect]
     Active Substance: DEXAMETHASONE
     Indication: PLASMA CELL MYELOMA
     Route: 048
     Dates: start: 20140102, end: 20140306
  3. DEXAMETHASONE. [Suspect]
     Active Substance: DEXAMETHASONE
     Route: 048
     Dates: start: 20140326
  4. ESEMEPRAZOLE [Concomitant]
     Indication: GASTROOESOPHAGEAL REFLUX DISEASE
     Route: 048
     Dates: start: 20131125, end: 20140430
  5. ESEMEPRAZOLE [Concomitant]
     Indication: GASTRITIS
  6. AMLODIPINE [Concomitant]
     Active Substance: AMLODIPINE BESYLATE
     Indication: HYPERTENSION
     Route: 048
     Dates: end: 201403
  7. TOREM [Concomitant]
     Active Substance: TORSEMIDE
     Indication: FLUID OVERLOAD
     Route: 048
  8. AMLODIPINE [Concomitant]
     Active Substance: AMLODIPINE BESYLATE
     Route: 048
     Dates: start: 201403, end: 20140430
  9. ACICLOVIR [Concomitant]
     Active Substance: ACYCLOVIR
     Indication: PROPHYLAXIS
     Route: 048
     Dates: start: 20140102
  10. HCT [Concomitant]
     Active Substance: HYDROCHLOROTHIAZIDE
     Indication: HYPERTENSION
     Route: 048
     Dates: start: 20140102, end: 20140308
  11. HCT [Concomitant]
     Active Substance: HYDROCHLOROTHIAZIDE
     Route: 048
     Dates: start: 20140309, end: 20140505
  12. TILIDIN [Concomitant]
     Active Substance: NALOXONE HYDROCHLORIDE\TILIDINE HYDROCHLORIDE
     Indication: NEURALGIA
     Route: 048
     Dates: start: 20140226, end: 20140422
  13. ZOMETA [Concomitant]
     Active Substance: ZOLEDRONIC ACID
     Indication: PROPHYLAXIS
     Route: 042
     Dates: start: 20120712
  14. CARFILZOMIB [Suspect]
     Active Substance: CARFILZOMIB
     Route: 042
     Dates: start: 20140129, end: 20140306
  15. ALLOPURINOL. [Concomitant]
     Active Substance: ALLOPURINOL
     Indication: PROPHYLAXIS
     Route: 048
     Dates: start: 20140102, end: 20140430
  16. CARFILZOMIB [Suspect]
     Active Substance: CARFILZOMIB
     Indication: PLASMA CELL MYELOMA
     Route: 042
     Dates: start: 20140102, end: 20140103
  17. CARFILZOMIB [Suspect]
     Active Substance: CARFILZOMIB
     Route: 042
     Dates: start: 20140326
  18. VIGANTOLETTEN [Concomitant]
     Active Substance: CHOLECALCIFEROL
     Indication: PROPHYLAXIS
     Route: 048
  19. COTRIM D.S. [Concomitant]
     Active Substance: SULFAMETHOXAZOLE\TRIMETHOPRIM
     Indication: PROPHYLAXIS
     Route: 048
     Dates: start: 20140102
  20. NACL [Concomitant]
     Active Substance: SODIUM CHLORIDE
     Route: 042
     Dates: start: 20131223
  21. ZOMETA [Concomitant]
     Active Substance: ZOLEDRONIC ACID
     Route: 042
     Dates: start: 20131223, end: 20140212
  22. NALOXON [Concomitant]
     Indication: NEURALGIA
     Route: 048
     Dates: start: 20140226, end: 20140422
  23. NOVALGIN [Concomitant]
     Active Substance: METAMIZOLE SODIUM
     Indication: NEURALGIA
     Route: 048
     Dates: start: 20131223
  24. NACL [Concomitant]
     Active Substance: SODIUM CHLORIDE
     Indication: PROPHYLAXIS
     Route: 042
     Dates: start: 20120712
  25. NACL [Concomitant]
     Active Substance: SODIUM CHLORIDE
     Route: 042
     Dates: start: 20131223, end: 20131223

REACTIONS (1)
  - Febrile infection [Recovered/Resolved]

NARRATIVE: CASE EVENT DATE: 20140309
